FAERS Safety Report 5492754-0 (Version None)
Quarter: 2007Q4

REPORT INFORMATION
  Report Type: 
  Country: None (occurrence: None)
  Receive Date: 20071023
  Receipt Date: 20071018
  Transmission Date: 20080405
  Serious: Yes (Death, Hospitalization)
  Sender: FDA-Public Use
  Company Number: PHHO2007DE17377

PATIENT
  Age: 58 Year
  Sex: Female

DRUGS (10)
  1. VOLTAREN [Suspect]
     Indication: RHEUMATOID ARTHRITIS
  2. KINERET [Suspect]
     Indication: RHEUMATOID ARTHRITIS
     Dates: start: 20030401, end: 20030501
  3. PREDNISOLONE [Suspect]
  4. METHOTREXATE [Concomitant]
     Dates: start: 20031101, end: 20031201
  5. PLASMAPHERESIS [Concomitant]
     Dates: start: 20041101, end: 20041101
  6. HYDROXYCHLOROQUINE SULFATE [Concomitant]
     Dates: start: 20031101, end: 20031201
  7. METOPROLOL SUCCINATE [Concomitant]
  8. FUROSEMIDE [Concomitant]
  9. LEVOTHYROXINE SODIUM [Concomitant]
  10. ESOMEPRAZOLE MAGNESIUM [Concomitant]

REACTIONS (10)
  - ATRIAL FIBRILLATION [None]
  - CARDIAC FAILURE [None]
  - CHEST PAIN [None]
  - DYSPNOEA [None]
  - GASTRIC ULCER [None]
  - MELAENA [None]
  - NAUSEA [None]
  - PLEURAL EFFUSION [None]
  - ULCER HAEMORRHAGE [None]
  - VOMITING [None]
